FAERS Safety Report 8556178-1 (Version None)
Quarter: 2012Q3

REPORT INFORMATION
  Report Type: 
  Country: None (occurrence: None)
  Receive Date: 20120719
  Receipt Date: 20120703
  Transmission Date: 20120928
  Serious: Yes (Other)
  Sender: FDA-Public Use
  Company Number: RISP20120007

PATIENT
  Age: 26 Year
  Sex: Female

DRUGS (3)
  1. RISPERIDONE [Suspect]
     Indication: POSTPARTUM NEUROSIS
  2. ZUCLOPENTHIXOL (ZUCLOPENTHIXOL) [Suspect]
     Indication: AGGRESSION
  3. OLANZAPINE [Suspect]
     Indication: PSYCHOMOTOR HYPERACTIVITY

REACTIONS (3)
  - PSYCHOMOTOR HYPERACTIVITY [None]
  - CATATONIA [None]
  - AGGRESSION [None]
